FAERS Safety Report 10791800 (Version 1)
Quarter: 2015Q1

REPORT INFORMATION
  Report Type: Spontaneous
  Country: US (occurrence: US)
  Receive Date: 20150213
  Receipt Date: 20150213
  Transmission Date: 20150721
  Serious: Yes (Hospitalization, Other)
  Sender: FDA-Public Use
  Company Number: US-GILEAD-2015-0136919

PATIENT
  Age: 69 Year
  Sex: Female

DRUGS (14)
  1. JANUVIA [Concomitant]
     Active Substance: SITAGLIPTIN PHOSPHATE
  2. ASA [Concomitant]
     Active Substance: ASPIRIN
  3. LETAIRIS [Suspect]
     Active Substance: AMBRISENTAN
     Indication: PULMONARY ARTERIAL HYPERTENSION
     Dosage: 10 MG, QD
     Route: 065
     Dates: start: 20120131
  4. ALLOPURINOL. [Concomitant]
     Active Substance: ALLOPURINOL
  5. METOLAZONE. [Concomitant]
     Active Substance: METOLAZONE
  6. SILDENAFIL. [Concomitant]
     Active Substance: SILDENAFIL
  7. TRAMADOL [Concomitant]
     Active Substance: TRAMADOL
  8. TORSEMIDE. [Concomitant]
     Active Substance: TORSEMIDE
  9. REQUIP [Concomitant]
     Active Substance: ROPINIROLE HYDROCHLORIDE
  10. GABAPENTIN. [Concomitant]
     Active Substance: GABAPENTIN
  11. SPIRONOLACTONE. [Concomitant]
     Active Substance: SPIRONOLACTONE
  12. METFORMIN [Concomitant]
     Active Substance: METFORMIN HYDROCHLORIDE
  13. LOVASTATIN. [Concomitant]
     Active Substance: LOVASTATIN
  14. COREG [Concomitant]
     Active Substance: CARVEDILOL

REACTIONS (1)
  - Hip arthroplasty [Unknown]

NARRATIVE: CASE EVENT DATE: 20141210
